FAERS Safety Report 4534166-X (Version None)
Quarter: 2004Q4

REPORT INFORMATION
  Report Type: 
  Country: None (occurrence: None)
  Receive Date: 20041221
  Receipt Date: 20041221
  Transmission Date: 20050328
  Serious: Yes (Life-Threatening, Hospitalization)
  Sender: FDA-Public Use
  Company Number: None

PATIENT
  Age: 31 Year
  Sex: Male
  Weight: 81.1939 kg

DRUGS (2)
  1. LAMOTRIGINE [Suspect]
     Indication: BIPOLAR II DISORDER
     Dosage: 200 MG QD PO
     Route: 048
     Dates: start: 20041022, end: 20041214
  2. LAMOTRIGINE [Suspect]
     Indication: DEPRESSION
     Dosage: 200 MG QD PO
     Route: 048
     Dates: start: 20041022, end: 20041214

REACTIONS (4)
  - DRY MOUTH [None]
  - INFLUENZA LIKE ILLNESS [None]
  - MARKEDLY REDUCED DIETARY INTAKE [None]
  - STEVENS-JOHNSON SYNDROME [None]
